FAERS Safety Report 9539662 (Version 2)
Quarter: 2013Q4

REPORT INFORMATION
  Report Type: Report from Study
  Country: AR (occurrence: AR)
  Receive Date: 20130920
  Receipt Date: 20131017
  Transmission Date: 20140711
  Serious: No
  Sender: FDA-Public Use
  Company Number: PHHY2013AR104906

PATIENT
  Sex: Male

DRUGS (1)
  1. DIOVAN [Suspect]
     Indication: HYPERTENSION
     Dosage: 160 MG, PER DAY
     Route: 048

REACTIONS (2)
  - Gastritis [Recovered/Resolved]
  - Blood triglycerides increased [Recovered/Resolved]
